FAERS Safety Report 9750998 (Version 2)
Quarter: 2015Q3

REPORT INFORMATION
  Report Type: Spontaneous
  Country: GB (occurrence: GB)
  Receive Date: 20131212
  Receipt Date: 20150730
  Transmission Date: 20151125
  Serious: Yes (Other)
  Sender: FDA-Public Use
  Company Number: GB-GILEAD-GB-CVT-090600

PATIENT
  Age: 70 Year

DRUGS (11)
  1. AMLODIPINE [Concomitant]
     Active Substance: AMLODIPINE BESYLATE
     Route: 048
  2. OMEPRAZOLE. [Concomitant]
     Active Substance: OMEPRAZOLE
  3. EZETIMIBE. [Concomitant]
     Active Substance: EZETIMIBE
  4. METFORMIN                          /00082701/ [Concomitant]
     Route: 048
  5. ASPIRIN                            /00002701/ [Concomitant]
     Active Substance: ASPIRIN
     Route: 048
  6. ATORVASTATIN                       /01326101/ [Concomitant]
     Active Substance: ATORVASTATIN
     Route: 048
  7. BISOPROLOL                         /00802601/ [Concomitant]
     Active Substance: BISOPROLOL
  8. RANEXA [Suspect]
     Active Substance: RANOLAZINE
     Indication: ANGINA PECTORIS
     Route: 048
     Dates: start: 20090725, end: 20090728
  9. ISOSORBIDE MONONITRATE. [Concomitant]
     Active Substance: ISOSORBIDE MONONITRATE
  10. NICORANDIL [Concomitant]
     Active Substance: NICORANDIL
  11. FLUTICASONE                        /00972201/ [Concomitant]

REACTIONS (1)
  - Hypoaesthesia oral [Not Recovered/Not Resolved]

NARRATIVE: CASE EVENT DATE: 20090725
